FAERS Safety Report 4444209-X (Version None)
Quarter: 2004Q3

REPORT INFORMATION
  Report Type: 
  Country: None (occurrence: None)
  Receive Date: 20040812
  Receipt Date: 20040305
  Transmission Date: 20050211
  Serious: Yes (Hospitalization, Other)
  Sender: FDA-Public Use
  Company Number: USA040360977

PATIENT
  Age: 69 Year
  Sex: Female
  Weight: 91 kg

DRUGS (2)
  1. HUMULIN N [Suspect]
     Dosage: 60 U DAY
     Dates: start: 20020101
  2. INSULIN [Suspect]

REACTIONS (7)
  - DIABETIC NEUROPATHY [None]
  - DYSSTASIA [None]
  - HAEMOLYTIC ANAEMIA [None]
  - HYPERSENSITIVITY [None]
  - MULTIPLE ALLERGIES [None]
  - SPHEROCYTIC ANAEMIA [None]
  - WEIGHT DECREASED [None]
